FAERS Safety Report 7247641-4 (Version None)
Quarter: 2011Q1

REPORT INFORMATION
  Report Type: 
  Country: None (occurrence: None)
  Receive Date: 20110127
  Receipt Date: 20110117
  Transmission Date: 20110831
  Serious: Yes (Life-Threatening, Other)
  Sender: FDA-Public Use
  Company Number: IT-JNJFOC-20100102869

PATIENT
  Sex: Female

DRUGS (1)
  1. CONTRAMAL [Suspect]
     Indication: PAIN
     Route: 048

REACTIONS (6)
  - RESPIRATORY FAILURE [None]
  - ACIDOSIS [None]
  - EUPHORIC MOOD [None]
  - HYPERCAPNIA [None]
  - CONFUSIONAL STATE [None]
  - ASTERIXIS [None]
